FAERS Safety Report 12956572 (Version 2)
Quarter: 2016Q4

REPORT INFORMATION
  Report Type: Spontaneous
  Country: DK (occurrence: DK)
  Receive Date: 20161118
  Receipt Date: 20161130
  Transmission Date: 20170207
  Serious: Yes (Hospitalization, Disabling)
  Sender: FDA-Public Use
  Company Number: DK-EISAI MEDICAL RESEARCH-EC-2016-022411

PATIENT
  Age: 44 Year
  Sex: Male
  Weight: 90 kg

DRUGS (4)
  1. FRISIUM [Concomitant]
     Active Substance: CLOBAZAM
     Indication: EPILEPSY
     Dosage: UNKNOWN
     Dates: start: 2010
  2. ZEBENIX [Interacting]
     Active Substance: ESLICARBAZEPINE ACETATE
     Indication: EPILEPSY
     Route: 048
     Dates: start: 20151022, end: 20161121
  3. FYCOMPA [Interacting]
     Active Substance: PERAMPANEL
     Dosage: DOSE REDUCED (UNSPECIFIED)
     Route: 048
     Dates: start: 2016
  4. FYCOMPA [Suspect]
     Active Substance: PERAMPANEL
     Indication: EPILEPSY
     Route: 048
     Dates: start: 20160128, end: 2016

REACTIONS (3)
  - Dyspnoea [Recovering/Resolving]
  - Alveolitis allergic [Recovering/Resolving]
  - Drug interaction [Not Recovered/Not Resolved]

NARRATIVE: CASE EVENT DATE: 201603
